FAERS Safety Report 10949255 (Version 1)
Quarter: 2015Q1

REPORT INFORMATION
  Report Type: Spontaneous
  Country: RU (occurrence: RU)
  Receive Date: 20150324
  Receipt Date: 20150324
  Transmission Date: 20150721
  Serious: Yes (Hospitalization)
  Sender: FDA-Public Use
  Company Number: RU-EISAI MEDICAL RESEARCH-EC-2015-004741

PATIENT
  Age: 56 Year
  Sex: Female
  Weight: 92 kg

DRUGS (2)
  1. REZOKLASTINE [Concomitant]
     Indication: METASTASES TO BONE
     Route: 065
     Dates: start: 20140813, end: 20140813
  2. HALAVEN [Suspect]
     Active Substance: ERIBULIN MESYLATE
     Indication: BREAST CANCER
     Route: 041
     Dates: start: 2014, end: 20140818

REACTIONS (2)
  - Myalgia [Recovering/Resolving]
  - Arthralgia [Recovering/Resolving]

NARRATIVE: CASE EVENT DATE: 20140819
